FAERS Safety Report 8343722-2 (Version None)
Quarter: 2012Q2

REPORT INFORMATION
  Report Type: 
  Country: None (occurrence: None)
  Receive Date: 20120508
  Receipt Date: 20120508
  Transmission Date: 20120825
  Serious: Yes (Other)
  Sender: FDA-Public Use
  Company Number: None

PATIENT
  Sex: Female

DRUGS (1)
  1. HUMIRA [Suspect]
     Indication: ANKYLOSING SPONDYLITIS
     Dosage: 40 MG
     Route: 058
     Dates: start: 20120419, end: 20120429

REACTIONS (6)
  - LYMPHADENOPATHY [None]
  - MALAISE [None]
  - FATIGUE [None]
  - ARTHRALGIA [None]
  - DRUG HYPERSENSITIVITY [None]
  - MYALGIA [None]
